FAERS Safety Report 9304160 (Version 1)
Quarter: 2013Q2

REPORT INFORMATION
  Report Type: Spontaneous
  Country: US (occurrence: US)
  Receive Date: 20130522
  Receipt Date: 20130522
  Transmission Date: 20140414
  Serious: No
  Sender: FDA-Public Use
  Company Number: US-COVIDIEN/TYCO HEALTHCARE/MALLINCKRODT-T201301864

PATIENT
  Sex: Male

DRUGS (2)
  1. GABLOFEN [Suspect]
     Dosage: 50 MCG OF SIMPLE CONTINUOS
     Route: 037
  2. BACLOFEN [Concomitant]
     Dosage: 10 MG, UNK
     Route: 048

REACTIONS (4)
  - Underdose [Unknown]
  - Muscle spasticity [Unknown]
  - Pain [Unknown]
  - Drug ineffective [Unknown]
